FAERS Safety Report 5724779-1 (Version None)
Quarter: 2008Q2

REPORT INFORMATION
  Report Type: 
  Country: None (occurrence: None)
  Receive Date: 20080501
  Receipt Date: 20080501
  Transmission Date: 20081010
  Serious: Yes (Death)
  Sender: FDA-Public Use
  Company Number: None

PATIENT
  Age: 70 Year
  Sex: Female
  Weight: 65.7716 kg

DRUGS (3)
  1. HEPARIN [Suspect]
  2. ASPIRIN [Concomitant]
  3. IBUPROFEN [Concomitant]

REACTIONS (7)
  - CARDIAC DISORDER [None]
  - CARDIAC FAILURE [None]
  - DRUG HYPERSENSITIVITY [None]
  - LEG AMPUTATION [None]
  - RENAL FAILURE [None]
  - SKIN GRAFT [None]
  - THROMBOSIS [None]
